FAERS Safety Report 6122229-7 (Version None)
Quarter: 2009Q1

REPORT INFORMATION
  Report Type: 
  Country: None (occurrence: None)
  Receive Date: 20090316
  Receipt Date: 20090226
  Transmission Date: 20090719
  Serious: Yes (Life-Threatening, Other)
  Sender: FDA-Public Use
  Company Number: 2009S1003551

PATIENT
  Age: 74 Year
  Sex: Male

DRUGS (8)
  1. BISOPROLOL FUMARATE [Suspect]
     Indication: HYPERTENSION
     Dosage: 5 MG;DAILY ORAL
     Route: 048
     Dates: start: 20050101, end: 20080927
  2. ENALAPRIL MALEATE [Suspect]
     Indication: RENAL FAILURE
     Dosage: 5 MG;DAILY ORAL
     Route: 048
     Dates: start: 20080101, end: 20080926
  3. ACTRAPHANE HM /00646002/(INSULIN HUMAN INJECTION , ISOPHANE) [Suspect]
     Indication: TYPE 2 DIABETES MELLITUS
     Dosage: 45 IU;TWICE A DAY AC
     Route: 058
     Dates: start: 20050101, end: 20080921
  4. ALLOPURINOL [Concomitant]
  5. ACETYLSALICYLIC ACID SRT [Concomitant]
  6. FUROSEMIDE [Concomitant]
  7. SIMVASTATIN [Concomitant]
  8. XIPAMIDE (XIPAMIDE) [Concomitant]

REACTIONS (2)
  - DRUG INTERACTION [None]
  - HYPOGLYCAEMIA [None]
